FAERS Safety Report 9000877 (Version 1)
Quarter: 2013Q1

REPORT INFORMATION
  Report Type: Spontaneous
  Country: US (occurrence: None)
  Receive Date: 20130103
  Receipt Date: 20130103
  Transmission Date: 20140127
  Serious: Yes (Other)
  Sender: FDA-Public Use
  Company Number: None

PATIENT
  Age: 60 Year
  Sex: Female
  Weight: 63.5 kg

DRUGS (1)
  1. DEXILANT [Suspect]
     Dosage: TOOK TWO, ONE WEEK APART

REACTIONS (6)
  - Abdominal pain upper [None]
  - Malaise [None]
  - Vomiting projectile [None]
  - Fear [None]
  - Nausea [None]
  - Product label issue [None]
